FAERS Safety Report 12806891 (Version 1)
Quarter: 2016Q4

REPORT INFORMATION
  Report Type: Spontaneous
  Country: US (occurrence: US)
  Receive Date: 20161004
  Receipt Date: 20161004
  Transmission Date: 20170207
  Serious: No
  Sender: FDA-Public Use
  Company Number: US-JNJFOC-20160823725

PATIENT
  Age: 53 Year
  Sex: Female
  Weight: 74.84 kg

DRUGS (2)
  1. WOMENS ROGAINE UNSCENTED [Suspect]
     Active Substance: MINOXIDIL
     Route: 061
  2. WOMENS ROGAINE UNSCENTED [Suspect]
     Active Substance: MINOXIDIL
     Indication: ALOPECIA
     Dosage: }HALF CAPFUL
     Route: 061
     Dates: start: 20160820, end: 20160825

REACTIONS (4)
  - Extra dose administered [Unknown]
  - Product formulation issue [Unknown]
  - Wrong technique in product usage process [Unknown]
  - Product physical issue [Unknown]
